FAERS Safety Report 7557621-7 (Version None)
Quarter: 2011Q2

REPORT INFORMATION
  Report Type: 
  Country: None (occurrence: None)
  Receive Date: 20110610
  Receipt Date: 20110527
  Transmission Date: 20111010
  Serious: Yes (Hospitalization, Other)
  Sender: FDA-Public Use
  Company Number: 936041

PATIENT
  Age: 54 Year
  Sex: Female

DRUGS (10)
  1. METFORMIN HCL [Suspect]
     Indication: PRODUCT USED FOR UNKNOWN INDICATION
  2. CEFEPIME HYDROCHLORIDE [Suspect]
     Indication: DIABETIC FOOT
  3. CIPRO [Suspect]
     Indication: PRODUCT USED FOR UNKNOWN INDICATION
  4. VIBATIV [Suspect]
     Indication: DIABETIC FOOT
     Dosage: 10 G/KG, UID/QD, INTRAVENOUS
     Route: 042
     Dates: start: 20110125, end: 20110210
  5. VIBATIV [Suspect]
     Indication: OSTEOMYELITIS
     Dosage: 10 G/KG, UID/QD, INTRAVENOUS
     Route: 042
     Dates: start: 20110125, end: 20110210
  6. VIBATIV [Suspect]
     Indication: DIABETIC ULCER
     Dosage: 10 G/KG, UID/QD, INTRAVENOUS
     Route: 042
     Dates: start: 20110125, end: 20110210
  7. ENALAPRIL MALEATE [Suspect]
     Indication: PRODUCT USED FOR UNKNOWN INDICATION
  8. ROCEPHIN [Suspect]
     Indication: DIABETIC FOOT
     Dosage: 1 G, UID/QD, PARENTERAL
     Route: 051
     Dates: start: 20110112, end: 20110210
  9. ALLOPURINOL [Suspect]
     Indication: PRODUCT USED FOR UNKNOWN INDICATION
  10. AUGMENTIN '125' [Suspect]
     Indication: PRODUCT USED FOR UNKNOWN INDICATION

REACTIONS (13)
  - TUBULOINTERSTITIAL NEPHRITIS [None]
  - DIABETES MELLITUS INADEQUATE CONTROL [None]
  - PANCYTOPENIA [None]
  - CELLULITIS [None]
  - DIARRHOEA [None]
  - KLEBSIELLA INFECTION [None]
  - HYPERTENSIVE HEART DISEASE [None]
  - DEBRIDEMENT [None]
  - CANDIDIASIS [None]
  - SEPSIS [None]
  - PNEUMONIA [None]
  - RENAL FAILURE ACUTE [None]
  - OSTEOMYELITIS [None]
